FAERS Safety Report 22021802 (Version 2)
Quarter: 2023Q1

REPORT INFORMATION
  Report Type: Spontaneous
  Country: US (occurrence: US)
  Receive Date: 20230222
  Receipt Date: 20230301
  Transmission Date: 20230418
  Serious: No
  Sender: FDA-Public Use
  Company Number: US-PROPHARMA-871

PATIENT
  Sex: Female

DRUGS (1)
  1. AYVAKIT [Suspect]
     Active Substance: AVAPRITINIB
     Indication: Systemic mastocytosis
     Route: 065
     Dates: start: 20220129

REACTIONS (7)
  - Malaise [Unknown]
  - Product dose omission issue [Unknown]
  - Pruritus [Unknown]
  - Urticaria [Unknown]
  - Tryptase increased [Unknown]
  - Mastocytosis [Unknown]
  - Spinal osteoarthritis [Unknown]
